FAERS Safety Report 5727022-2 (Version None)
Quarter: 2008Q2

REPORT INFORMATION
  Report Type: 
  Country: None (occurrence: None)
  Receive Date: 20080505
  Receipt Date: 20080403
  Transmission Date: 20081010
  Serious: No
  Sender: FDA-Public Use
  Company Number: US-BAYER-200819202NA

PATIENT
  Age: 34 Year
  Sex: Female
  Weight: 100 kg

DRUGS (8)
  1. MIRENA [Suspect]
     Indication: CONTRACEPTION
     Route: 015
     Dates: start: 20050101
  2. ADVAIR HFA [Concomitant]
     Indication: ASTHMA
  3. TYLENOL [Concomitant]
  4. AVELOX [Concomitant]
  5. ZITHROMAX [Concomitant]
  6. BENADRYL [Concomitant]
  7. IBUPROFEN TABLETS [Concomitant]
  8. COUGH SYRUP [Concomitant]

REACTIONS (1)
  - RASH [None]
